FAERS Safety Report 10930143 (Version 2)
Quarter: 2015Q1

REPORT INFORMATION
  Report Type: Report from Study
  Country: CA (occurrence: CA)
  Receive Date: 20150319
  Receipt Date: 20150324
  Transmission Date: 20150721
  Serious: Yes (Hospitalization)
  Sender: FDA-Public Use
  Company Number: CA-SA-2014SA016266

PATIENT
  Age: 55 Year
  Sex: Male
  Weight: 104 kg

DRUGS (7)
  1. PLERIXAFOR [Suspect]
     Active Substance: PLERIXAFOR
     Indication: HAEMATOPOIETIC STEM CELL MOBILISATION
     Route: 058
     Dates: start: 20140127, end: 20140130
  2. PARIET [Concomitant]
     Active Substance: RABEPRAZOLE SODIUM
     Route: 048
  3. SYNTHROID [Concomitant]
     Active Substance: LEVOTHYROXINE SODIUM
     Route: 048
  4. GLICLAZIDE [Concomitant]
     Active Substance: GLICLAZIDE
     Route: 048
  5. SLOW-K [Concomitant]
     Active Substance: POTASSIUM CHLORIDE
     Route: 048
  6. G-CSF [Concomitant]
     Active Substance: GRANULOCYTE COLONY-STIMULATING FACTOR NOS
     Indication: HAEMATOPOIETIC STEM CELL MOBILISATION
     Route: 058
     Dates: start: 20140124, end: 20140127
  7. LOSARTAN [Concomitant]
     Active Substance: LOSARTAN

REACTIONS (5)
  - Drug administration error [Unknown]
  - Neck pain [Recovered/Resolved]
  - Thrombosis in device [Recovered/Resolved]
  - Pharyngitis [Unknown]
  - Pyrexia [Unknown]

NARRATIVE: CASE EVENT DATE: 20140130
